FAERS Safety Report 6649572-7 (Version None)
Quarter: 2010Q1

REPORT INFORMATION
  Report Type: 
  Country: None (occurrence: None)
  Receive Date: 20100324
  Receipt Date: 20100324
  Transmission Date: 20100710
  Serious: No
  Sender: FDA-Public Use
  Company Number: None

PATIENT
  Age: 40 Year
  Sex: Female
  Weight: 67.1324 kg

DRUGS (1)
  1. LEVAQUIN [Suspect]
     Indication: SINUSITIS
     Dosage: 500 MG -1 TABLET- DAILY PO
     Route: 048
     Dates: start: 20100211, end: 20100220

REACTIONS (15)
  - ANGINA PECTORIS [None]
  - ARTHRALGIA [None]
  - BURNING SENSATION [None]
  - DECREASED APPETITE [None]
  - DISTURBANCE IN ATTENTION [None]
  - DYSPNOEA [None]
  - FATIGUE [None]
  - HEPATIC PAIN [None]
  - IMMOBILE [None]
  - MEMORY IMPAIRMENT [None]
  - NAUSEA [None]
  - RENAL PAIN [None]
  - TENDON PAIN [None]
  - VITREOUS FLOATERS [None]
  - WEIGHT DECREASED [None]
